FAERS Safety Report 4309497-9 (Version None)
Quarter: 2004Q1

REPORT INFORMATION
  Report Type: 
  Country: None (occurrence: None)
  Receive Date: 20040227
  Receipt Date: 20040218
  Transmission Date: 20041129
  Serious: Yes (Death)
  Sender: FDA-Public Use
  Company Number: US-BRISTOL-MYERS SQUIBB COMPANY-12509782

PATIENT
  Age: 49 Year
  Sex: Female

DRUGS (10)
  1. TAXOL [Suspect]
     Indication: BREAST CANCER
     Route: 042
     Dates: start: 20040212, end: 20040212
  2. BENADRYL [Concomitant]
     Indication: PREMEDICATION
     Route: 042
     Dates: start: 20040212, end: 20040212
  3. PEPCID [Concomitant]
     Indication: PREMEDICATION
     Route: 042
     Dates: start: 20040212, end: 20040212
  4. DECADRON [Concomitant]
     Indication: PREMEDICATION
     Route: 042
     Dates: start: 20040212, end: 20040212
  5. KYTRIL [Concomitant]
     Indication: PREMEDICATION
     Route: 048
     Dates: start: 20040212, end: 20040212
  6. PHENERGAN [Concomitant]
     Dates: start: 20040106, end: 20040212
  7. PEPCID AC [Concomitant]
     Dates: start: 20040106, end: 20040212
  8. MAGIC MOUTHWASH [Concomitant]
     Dates: start: 20040122
  9. LEVAQUIN [Concomitant]
     Dates: start: 20040123
  10. XELODA [Concomitant]
     Route: 048
     Dates: start: 20040205

REACTIONS (1)
  - RESPIRATORY ARREST [None]
